FAERS Safety Report 5259827-9 (Version None)
Quarter: 2007Q1

REPORT INFORMATION
  Report Type: 
  Country: None (occurrence: None)
  Receive Date: 20061117
  Receipt Date: 20051012
  Transmission Date: 20070707
  Serious: Yes (Disabling)
  Sender: FDA-Public Use
  Company Number: NSADSS2002001234

PATIENT
  Age: 56 Year
  Sex: Female
  Weight: 56.6996 kg

DRUGS (9)
  1. LEVAQUIN [Suspect]
     Indication: MORTON'S NEUROMA
     Dosage: 500 MG, 2 IN 1 DAY, ORAL
     Route: 048
     Dates: start: 20010906, end: 20010920
  2. WELLBUTRIN [Concomitant]
  3. CELEBREX (CELECOXIB) UNSPECIFIED [Concomitant]
  4. ESTRADIOL (ESTRADIOL) UNSPECIFIED [Concomitant]
  5. ALLEGRA (FEXOFENADINE HYDROCHLORIDE) UNSPECIFIED [Concomitant]
  6. HCTZ (HYDROCHLOROTHIAZIDE) UNSPECIFIED [Concomitant]
  7. ZESTRIL [Concomitant]
  8. KDUR (POTASSIUM CHLORIDE) UNSPECIFIED [Concomitant]
  9. RENERAN (ALL OTHER THERAPEUTIC PRODUCTS) UNSPECIFIED [Concomitant]

REACTIONS (5)
  - ARTHRALGIA [None]
  - ASTHENIA [None]
  - BLISTER [None]
  - FLUSHING [None]
  - MUSCULAR WEAKNESS [None]
